FAERS Safety Report 9960356 (Version 1)
Quarter: 2014Q1

REPORT INFORMATION
  Report Type: Spontaneous
  Country: US (occurrence: None)
  Receive Date: 20140228
  Receipt Date: 20140228
  Transmission Date: 20141002
  Serious: Yes (Other)
  Sender: FDA-Public Use
  Company Number: US-SEPTODONT-201401734

PATIENT
  Age: 21 Year
  Sex: Female

DRUGS (1)
  1. 3% MEPIVACAINE HCI WITHOUT EPINEPHRINE [Suspect]
     Indication: LOCAL ANAESTHESIA
     Dosage: DENTAL
     Route: 004

REACTIONS (7)
  - Hypersensitivity [None]
  - Eye pruritus [None]
  - Throat irritation [None]
  - Nasal congestion [None]
  - Throat tightness [None]
  - Dyspnoea [None]
  - Urticaria [None]
